FAERS Safety Report 5787390-2 (Version None)
Quarter: 2008Q2

REPORT INFORMATION
  Report Type: 
  Country: None (occurrence: None)
  Receive Date: 20080620
  Receipt Date: 20080612
  Transmission Date: 20081010
  Serious: Yes (Hospitalization, Other)
  Sender: FDA-Public Use
  Company Number: 2008SP011623

PATIENT
  Age: 51 Year
  Sex: Male

DRUGS (2)
  1. INTRON A [Suspect]
     Indication: HEPATITIS C
  2. RIBAVIRIN [Suspect]
     Indication: HEPATITIS C
     Dosage: PO
     Route: 048

REACTIONS (7)
  - CHILLS [None]
  - CHOLECYSTECTOMY [None]
  - CHRONIC HEPATIC FAILURE [None]
  - LIVER TRANSPLANT [None]
  - PLATELET COUNT DECREASED [None]
  - PYREXIA [None]
  - SPLEEN DISORDER [None]
